FAERS Safety Report 6194185-7 (Version None)
Quarter: 2009Q2

REPORT INFORMATION
  Report Type: 
  Country: None (occurrence: None)
  Receive Date: 20090518
  Receipt Date: 20090512
  Transmission Date: 20091009
  Serious: Yes (Disabling)
  Sender: FDA-Public Use
  Company Number: GB-MERCK-0905GBR00033

PATIENT
  Age: 49 Year
  Sex: Female
  Weight: 89 kg

DRUGS (5)
  1. JANUVIA [Suspect]
     Indication: DIABETES MELLITUS
     Route: 048
     Dates: start: 20081201, end: 20090401
  2. ASPIRIN [Concomitant]
     Indication: DIABETES MELLITUS
     Route: 048
     Dates: start: 20070101
  3. METFORMIN [Concomitant]
     Indication: DIABETES MELLITUS
     Route: 048
     Dates: start: 20000101
  4. RAMIPRIL [Concomitant]
     Indication: HYPERTENSION
     Route: 048
     Dates: start: 20050101
  5. SIMVASTATIN [Concomitant]
     Indication: DIABETES MELLITUS
     Route: 048
     Dates: start: 20060101

REACTIONS (2)
  - ARTHRALGIA [None]
  - JOINT SWELLING [None]
